FAERS Safety Report 7360928-X (Version None)
Quarter: 2011Q1

REPORT INFORMATION
  Report Type: 
  Country: None (occurrence: None)
  Receive Date: 20110315
  Receipt Date: 20110315
  Transmission Date: 20110831
  Serious: Yes (Disabling, Other)
  Sender: FDA-Public Use
  Company Number: None

PATIENT
  Age: 71 Year
  Sex: Female
  Weight: 58.9676 kg

DRUGS (4)
  1. LOVASTATIN [Suspect]
  2. BENZONATATE [Suspect]
  3. CITALOPRAM HYDROBROMIDE [Suspect]
     Indication: ANXIETY
     Dosage: 300MG A DAY 1 AT BEDTIME MOUTH
     Route: 048
  4. TRAZODONE HCL [Suspect]
     Dosage: 1 TAB AT BEDTIME MOUTH
     Route: 048

REACTIONS (2)
  - TINNITUS [None]
  - HYPOACUSIS [None]
